FAERS Safety Report 10254098 (Version 1)
Quarter: 2014Q2

REPORT INFORMATION
  Report Type: Spontaneous
  Country: US (occurrence: US)
  Receive Date: 20140623
  Receipt Date: 20140623
  Transmission Date: 20141212
  Serious: Yes (Death)
  Sender: FDA-Public Use
  Company Number: US-JNJFOC-20140613473

PATIENT
  Sex: 0

DRUGS (2)
  1. PHENYLEPHRINE HYDROCHLORIDE [Suspect]
     Indication: CARDIOGENIC SHOCK
     Route: 065
  2. PHENYLEPHRINE HYDROCHLORIDE [Suspect]
     Indication: MYOCARDIAL INFARCTION
     Route: 065

REACTIONS (2)
  - Death [Fatal]
  - Off label use [Unknown]
